FAERS Safety Report 23053981 (Version 4)
Quarter: 2024Q3

REPORT INFORMATION
  Report Type: Spontaneous
  Country: IL (occurrence: IL)
  Receive Date: 20231011
  Receipt Date: 20240715
  Transmission Date: 20241017
  Serious: No
  Sender: ASTELLAS
  Company Number: IL-ASTELLAS-2023US029879

PATIENT
  Age: 75 Year

DRUGS (2)
  1. PADCEV [Suspect]
     Active Substance: ENFORTUMAB VEDOTIN-EJFV
     Indication: Transitional cell carcinoma metastatic
     Dosage: 1 MG/KG, A DAY
     Route: 040
     Dates: start: 20230920, end: 20231002
  2. PEMBROLIZUMAB [Concomitant]
     Active Substance: PEMBROLIZUMAB
     Indication: Transitional cell carcinoma metastatic
     Dosage: 1 DF, TOTAL DOSE (1 DOSE OF 200 MG)
     Route: 040

REACTIONS (4)
  - Hypomagnesaemia [Recovered/Resolved]
  - Hypophosphataemia [Recovered/Resolved]
  - Underdose [Unknown]
  - Off label use [Unknown]

NARRATIVE: CASE EVENT DATE: 20230920
